FAERS Safety Report 4699047-X (Version None)
Quarter: 2005Q2

REPORT INFORMATION
  Report Type: 
  Country: None (occurrence: None)
  Receive Date: 20050622
  Receipt Date: 20050622
  Transmission Date: 20051028
  Serious: Yes (Other)
  Sender: FDA-Public Use
  Company Number: None

PATIENT
  Age: 26 Year
  Sex: Male
  Weight: 58.9676 kg

DRUGS (1)
  1. BENZOLYL PEOXIDE 10% TOPICAL [Suspect]
     Indication: ACNE
     Dosage: TOPICAL [ONE TIME]
     Route: 061
     Dates: start: 20050430

REACTIONS (2)
  - CONDITION AGGRAVATED [None]
  - TINNITUS [None]
